FAERS Safety Report 17027169 (Version 1)
Quarter: 2019Q4

REPORT INFORMATION
  Report Type: Spontaneous
  Country: US (occurrence: US)
  Receive Date: 20191010
  Receipt Date: 20191010
  Transmission Date: 20200122
  Serious: No
  Sender: FDA-Public Use
  Company Number: None

PATIENT
  Sex: Female

DRUGS (1)
  1. STIVARGA [Suspect]
     Active Substance: REGORAFENIB
     Indication: COLON CANCER
     Route: 048
     Dates: start: 201908

REACTIONS (6)
  - Fatigue [None]
  - Dry mouth [None]
  - Weight decreased [None]
  - Back pain [None]
  - Decreased appetite [None]
  - Dehydration [None]
